FAERS Safety Report 8924976 (Version 2)
Quarter: 2012Q4

REPORT INFORMATION
  Report Type: 
  Country: JP (occurrence: JP)
  Receive Date: 20121126
  Receipt Date: 20121214
  Transmission Date: 20130627
  Serious: Yes (Death, Hospitalization)
  Sender: FDA-Public Use
  Company Number: JP-B.I. PHARMACEUTICALS,INC./RIDGEFIELD-2012-BI-00588NB

PATIENT
  Age: 81 Year
  Sex: Female

DRUGS (9)
  1. PRADAXA [Suspect]
     Indication: ATRIAL FIBRILLATION
     Dosage: 150 mg
     Route: 048
     Dates: start: 201208, end: 20121114
  2. FRANDOL S [Concomitant]
     Route: 065
  3. TEGRETOL [Concomitant]
     Route: 065
  4. EXCEGRAN [Concomitant]
     Route: 065
     Dates: end: 20121119
  5. GASTER [Concomitant]
     Route: 065
  6. OPALMON [Concomitant]
     Route: 065
  7. JU-KAMA [Concomitant]
     Route: 065
  8. ALOSENN [Concomitant]
     Route: 065
  9. HYALEIN [Concomitant]
     Route: 065

REACTIONS (3)
  - Respiratory arrest [Fatal]
  - Activated partial thromboplastin time prolonged [Recovered/Resolved]
  - Convulsion [Recovered/Resolved]
